FAERS Safety Report 7931960-X (Version None)
Quarter: 2011Q4

REPORT INFORMATION
  Report Type: 
  Country: None (occurrence: None)
  Receive Date: 20111121
  Receipt Date: 20111111
  Transmission Date: 20120403
  Serious: Yes (Other)
  Sender: FDA-Public Use
  Company Number: US-ABBOTT-11P-163-0855677-00

PATIENT
  Age: 3 Month
  Sex: Female

DRUGS (2)
  1. VECURONIUM BROMIDE [Suspect]
     Indication: GENERAL ANAESTHESIA
  2. SEVOFLURORANE [Suspect]
     Indication: GENERAL ANAESTHESIA

REACTIONS (1)
  - VENTRICULAR FIBRILLATION [None]
